FAERS Safety Report 15932962 (Version 1)
Quarter: 2019Q1

REPORT INFORMATION
  Report Type: Spontaneous
  Country: US (occurrence: US)
  Receive Date: 20190116
  Receipt Date: 20190116
  Transmission Date: 20190417
  Serious: Yes (Hospitalization)
  Sender: FDA-Public Use
  Company Number: None

PATIENT
  Age: 64 Year
  Sex: Female

DRUGS (2)
  1. LETAIRIS [Suspect]
     Active Substance: AMBRISENTAN
     Indication: PULMONARY ARTERIAL HYPERTENSION
     Route: 048
     Dates: start: 20141010
  2. LETAIRIS [Suspect]
     Active Substance: AMBRISENTAN
     Indication: TINEA PEDIS
     Route: 048
     Dates: start: 20141010

REACTIONS (3)
  - Sepsis [None]
  - Tinea pedis [None]
  - Cellulitis [None]

NARRATIVE: CASE EVENT DATE: 20190106
